FAERS Safety Report 10410524 (Version 1)
Quarter: 2014Q3

REPORT INFORMATION
  Report Type: Spontaneous
  Country: US (occurrence: US)
  Receive Date: 20140826
  Receipt Date: 20140826
  Transmission Date: 20150326
  Serious: No
  Sender: FDA-Public Use
  Company Number: US-BRISTOL-MYERS SQUIBB COMPANY-19219773

PATIENT
  Age: 46 Year
  Sex: Male
  Weight: 131.52 kg

DRUGS (2)
  1. BENADRYL [Concomitant]
     Active Substance: DIPHENHYDRAMINE HYDROCHLORIDE
  2. KENALOG-40 [Suspect]
     Active Substance: TRIAMCINOLONE ACETONIDE
     Indication: URTICARIA

REACTIONS (7)
  - Peripheral swelling [Unknown]
  - Rash [Unknown]
  - Flushing [Unknown]
  - Lethargy [Unknown]
  - Paraesthesia [Unknown]
  - Abdominal pain upper [Unknown]
  - Mood altered [Recovering/Resolving]
